FAERS Safety Report 7272344-X (Version None)
Quarter: 2011Q1

REPORT INFORMATION
  Report Type: 
  Country: None (occurrence: None)
  Receive Date: 20110203
  Receipt Date: 20110129
  Transmission Date: 20110831
  Serious: Yes (Life-Threatening, Hospitalization, Other)
  Sender: FDA-Public Use
  Company Number: PHHY2010FI71699

PATIENT
  Sex: Male

DRUGS (12)
  1. LEVEMIR [Concomitant]
     Indication: DIABETES MELLITUS
     Dosage: 20 UNITS A DAY
     Route: 058
     Dates: start: 20101013
  2. AVANDAMET [Concomitant]
     Indication: DIABETES MELLITUS
     Dosage: 1 DF, BID
     Route: 048
     Dates: end: 20101012
  3. ZANIDIP [Concomitant]
     Indication: HYPERTENSION
     Dosage: 1 DF, QD
     Route: 048
     Dates: end: 20101012
  4. BISOPROLOL [Concomitant]
     Indication: HYPERTENSION
  5. AMARYL [Concomitant]
     Indication: DIABETES MELLITUS
     Dosage: 1 DF, BID
     Route: 048
     Dates: end: 20101012
  6. DIOVAN [Concomitant]
     Indication: HYPERTENSION
     Dosage: 1 DF, QD
     Route: 048
     Dates: start: 20101013
  7. TASIGNA [Suspect]
     Indication: CHRONIC LYMPHOCYTIC LEUKAEMIA
     Dosage: 400 MG, BID
     Route: 048
     Dates: end: 20101015
  8. CELECTOL [Concomitant]
     Indication: HYPERTENSION
     Dosage: 1 DF, QD
     Route: 048
     Dates: end: 20101013
  9. MAREVAN [Concomitant]
     Indication: ATRIAL FIBRILLATION
     Dosage: 5 MG, UNK
     Route: 048
     Dates: start: 20101013
  10. ORMOX [Concomitant]
     Indication: CORONARY ARTERY DISEASE
     Dosage: 0.5 DF, BID
     Route: 048
  11. BISOPROLOL [Concomitant]
     Indication: ATRIAL FIBRILLATION
     Dosage: 1 DF, QD
     Route: 048
     Dates: start: 20101013
  12. FURESIS [Concomitant]
     Indication: CARDIAC FAILURE
     Dosage: 2+1 TABLETS A DAY
     Route: 048
     Dates: start: 20101013

REACTIONS (7)
  - ATRIAL FIBRILLATION [None]
  - ATRIAL FLUTTER [None]
  - DIABETES MELLITUS [None]
  - GENERAL PHYSICAL HEALTH DETERIORATION [None]
  - CHEST PAIN [None]
  - DYSPNOEA [None]
  - ARRHYTHMIA [None]
